FAERS Safety Report 21985058 (Version 1)
Quarter: 2023Q1

REPORT INFORMATION
  Report Type: Spontaneous
  Country: US (occurrence: None)
  Receive Date: 20230210
  Receipt Date: 20230210
  Transmission Date: 20230417
  Serious: Yes (Other)
  Sender: FDA-Public Use
  Company Number: None

PATIENT
  Age: 67 Year
  Sex: Female
  Weight: 78.75 kg

DRUGS (12)
  1. MIRABEGRON [Suspect]
     Active Substance: MIRABEGRON
     Indication: Hypertonic bladder
     Dosage: FREQUENCY : DAILY;?
     Route: 048
     Dates: start: 20230206, end: 20230207
  2. ASPIRIN [Concomitant]
     Active Substance: ASPIRIN
  3. ATORVASTATIN [Concomitant]
     Active Substance: ATORVASTATIN
  4. ALBUTEROL [Concomitant]
     Active Substance: ALBUTEROL
  5. ALPRAZOLAM [Concomitant]
     Active Substance: ALPRAZOLAM
  6. LAMOTRIGINE [Concomitant]
     Active Substance: LAMOTRIGINE
  7. ESOMEPRAZOLE [Concomitant]
     Active Substance: ESOMEPRAZOLE
  8. QUETIAPINE [Concomitant]
     Active Substance: QUETIAPINE
  9. SYMBICORT [Concomitant]
     Active Substance: BUDESONIDE\FORMOTEROL FUMARATE DIHYDRATE
  10. TRAZODONE [Concomitant]
     Active Substance: TRAZODONE HYDROCHLORIDE
  11. VERAPAMIL [Concomitant]
     Active Substance: VERAPAMIL HYDROCHLORIDE
  12. VENLAFAXINE [Concomitant]
     Active Substance: VENLAFAXINE HYDROCHLORIDE

REACTIONS (4)
  - Rash [None]
  - Pruritus [None]
  - Rash macular [None]
  - Rash [None]

NARRATIVE: CASE EVENT DATE: 20230206
